FAERS Safety Report 4404749-6 (Version None)
Quarter: 2004Q3

REPORT INFORMATION
  Report Type: 
  Country: None (occurrence: None)
  Receive Date: 20040720
  Receipt Date: 20040707
  Transmission Date: 20050211
  Serious: Yes (Other)
  Sender: FDA-Public Use
  Company Number: DE-JNJFOC-20040701733

PATIENT
  Age: 40 Year
  Sex: Female

DRUGS (1)
  1. HALDOL [Suspect]
     Indication: SCHIZOPHRENIA

REACTIONS (4)
  - BRADYCARDIA [None]
  - COMA [None]
  - HYPOTHERMIA [None]
  - SOMNOLENCE [None]
